FAERS Safety Report 17265575 (Version 2)
Quarter: 2020Q1

REPORT INFORMATION
  Report Type: Spontaneous
  Country: JP (occurrence: JP)
  Receive Date: 20200114
  Receipt Date: 20200127
  Transmission Date: 20200409
  Serious: Yes (Life-Threatening, Disabling, Other)
  Sender: FDA-Public Use
  Company Number: JP-SAKK-2020SA007243AA

PATIENT
  Age: 75 Year
  Sex: Female
  Weight: 45 kg

DRUGS (2)
  1. FABRAZYME [Suspect]
     Active Substance: AGALSIDASE BETA
     Indication: FABRY^S DISEASE
     Dosage: 45 MG, QOW
     Route: 041
     Dates: start: 200709, end: 201612
  2. FABRAZYME [Suspect]
     Active Substance: AGALSIDASE BETA
     Indication: FABRY^S DISEASE
     Dosage: 45 MG, QOW
     Route: 041
     Dates: start: 200709, end: 201612

REACTIONS (6)
  - Cardiac failure congestive [Unknown]
  - Tachyarrhythmia [Unknown]
  - Depression [Unknown]
  - Bradyarrhythmia [Unknown]
  - Ventricular tachycardia [Unknown]
  - Multiple organ dysfunction syndrome [Unknown]

NARRATIVE: CASE EVENT DATE: 2008
